FAERS Safety Report 4897808-5 (Version None)
Quarter: 2006Q1

REPORT INFORMATION
  Report Type: 
  Country: None (occurrence: None)
  Receive Date: 20060130
  Receipt Date: 20060130
  Transmission Date: 20060701
  Serious: Yes (Hospitalization, Other)
  Sender: FDA-Public Use
  Company Number: None

PATIENT
  Sex: Female
  Weight: 34.1 kg

DRUGS (1)
  1. TOPOTECAN [Suspect]
     Indication: BRAIN STEM GLIOMA
     Dosage: 13.2 MG
     Dates: start: 20051219

REACTIONS (3)
  - BALANCE DISORDER [None]
  - INTRACRANIAL TUMOUR HAEMORRHAGE [None]
  - SOMNOLENCE [None]
